FAERS Safety Report 5931152-X (Version None)
Quarter: 2008Q4

REPORT INFORMATION
  Report Type: 
  Country: None (occurrence: None)
  Receive Date: 20081027
  Receipt Date: 20081016
  Transmission Date: 20090506
  Serious: Yes (Hospitalization)
  Sender: FDA-Public Use
  Company Number: PHHY2008FR25035

PATIENT
  Sex: Female

DRUGS (4)
  1. TEGRETOL [Suspect]
     Indication: EPILEPSY
     Dosage: 400 MG, BID
     Dates: start: 20080423, end: 20080520
  2. KEPPRA [Concomitant]
     Dosage: 500 MG, TID
  3. LYRICA [Concomitant]
     Dosage: 1 DF/DAY
  4. ASCABIOL [Concomitant]
     Indication: ACARODERMATITIS

REACTIONS (15)
  - ABDOMINAL PAIN UPPER [None]
  - ALANINE AMINOTRANSFERASE INCREASED [None]
  - ASPARTATE AMINOTRANSFERASE INCREASED [None]
  - DECREASED APPETITE [None]
  - GENERAL PHYSICAL HEALTH DETERIORATION [None]
  - HEPATITIS ACUTE [None]
  - HEPATOSPLENOMEGALY [None]
  - HYPERHIDROSIS [None]
  - INFECTIOUS MONONUCLEOSIS [None]
  - INFLUENZA LIKE ILLNESS [None]
  - LYMPHADENOPATHY [None]
  - MONOCYTE COUNT INCREASED [None]
  - MONONUCLEOSIS SYNDROME [None]
  - NAUSEA [None]
  - PURPURA [None]
